FAERS Safety Report 5574662-X (Version None)
Quarter: 2007Q4

REPORT INFORMATION
  Report Type: 
  Country: None (occurrence: None)
  Receive Date: 20071226
  Receipt Date: 20071226
  Transmission Date: 20080405
  Serious: No
  Sender: FDA-Public Use
  Company Number: None

PATIENT
  Age: 49 Year
  Sex: Male
  Weight: 77.1115 kg

DRUGS (1)
  1. CIALIS [Suspect]
     Indication: TINNITUS
     Dosage: 20MG PO
     Route: 048
     Dates: start: 20071220, end: 20071222

REACTIONS (1)
  - TINNITUS [None]
